FAERS Safety Report 23982758 (Version 1)
Quarter: 2024Q2

REPORT INFORMATION
  Report Type: Spontaneous
  Country: US (occurrence: None)
  Receive Date: 20240617
  Receipt Date: 20240617
  Transmission Date: 20240715
  Serious: Yes (Other)
  Sender: FDA-Public Use
  Company Number: None

PATIENT
  Age: 62 Year
  Sex: Male
  Weight: 84 kg

DRUGS (2)
  1. HECTOROL [Suspect]
     Active Substance: DOXERCALCIFEROL
     Indication: Hyperparathyroidism secondary
     Dosage: OTHER FREQUENCY : ONCE;?
     Route: 042
     Dates: start: 20240612, end: 20240612
  2. TUBERSOL [Concomitant]
     Active Substance: TUBERCULIN PURIFIED PROTEIN DERIVATIVE

REACTIONS (5)
  - Blood pressure increased [None]
  - Dyspnoea [None]
  - Dyskinesia [None]
  - Muscle spasms [None]
  - Drug hypersensitivity [None]

NARRATIVE: CASE EVENT DATE: 20240612
